FAERS Safety Report 7906933-3 (Version None)
Quarter: 2011Q4

REPORT INFORMATION
  Report Type: 
  Country: None (occurrence: None)
  Receive Date: 20111110
  Receipt Date: 20111104
  Transmission Date: 20120403
  Serious: Yes (Hospitalization, Other)
  Sender: FDA-Public Use
  Company Number: US-SANOFI-AVENTIS-2011SA065942

PATIENT
  Age: 56 Year
  Sex: Male
  Weight: 106.36 kg

DRUGS (1)
  1. MULTAQ [Suspect]
     Indication: ARRHYTHMIA PROPHYLAXIS
     Route: 048
     Dates: start: 20110714, end: 20110927

REACTIONS (4)
  - PO2 DECREASED [None]
  - HYPOXIA [None]
  - ATRIAL FIBRILLATION [None]
  - DYSPNOEA [None]
